FAERS Safety Report 21321241 (Version 1)
Quarter: 2022Q3

REPORT INFORMATION
  Report Type: Spontaneous
  Country: US (occurrence: US)
  Receive Date: 20220912
  Receipt Date: 20220912
  Transmission Date: 20221026
  Serious: Yes (Other)
  Sender: FDA-Public Use
  Company Number: US-SA-SAC20220906001014

PATIENT
  Sex: Female

DRUGS (1)
  1. LEMTRADA [Suspect]
     Active Substance: ALEMTUZUMAB
     Dosage: UNK
     Route: 065

REACTIONS (7)
  - Rhabdomyolysis [Unknown]
  - Optic neuritis [Unknown]
  - Immobile [Unknown]
  - Spinal cord disorder [Unknown]
  - Central nervous system lesion [Unknown]
  - Myopathy [Unknown]
  - Asthenia [Unknown]
